FAERS Safety Report 7225703-5 (Version None)
Quarter: 2011Q1

REPORT INFORMATION
  Report Type: 
  Country: None (occurrence: None)
  Receive Date: 20110113
  Receipt Date: 20110110
  Transmission Date: 20110831
  Serious: Yes (Other)
  Sender: FDA-Public Use
  Company Number: GB-EISAI INC.-E2090-01452-SPO-GB

PATIENT
  Sex: Male

DRUGS (2)
  1. LAMOTRIGINE [Concomitant]
  2. ZONEGRAN [Suspect]
     Indication: EPILEPSY
     Dosage: UNKNOWN
     Route: 048

REACTIONS (1)
  - MALIGNANT MELANOMA [None]
